FAERS Safety Report 22014437 (Version 2)
Quarter: 2023Q1

REPORT INFORMATION
  Report Type: Report from Study
  Country: BR (occurrence: BR)
  Receive Date: 20230221
  Receipt Date: 20230224
  Transmission Date: 20230417
  Serious: Yes (Other)
  Sender: FDA-Public Use
  Company Number: BR-002147023-NVSC2023BR037061

PATIENT
  Sex: Female

DRUGS (1)
  1. ANASTROZOLE [Suspect]
     Active Substance: ANASTROZOLE
     Indication: Product used for unknown indication
     Dosage: UNK
     Route: 065

REACTIONS (7)
  - Neoplasm malignant [Unknown]
  - Blindness [Unknown]
  - Malaise [Unknown]
  - Visual impairment [Unknown]
  - Eye irritation [Unknown]
  - Eye disorder [Unknown]
  - Nausea [Unknown]

NARRATIVE: CASE EVENT DATE: 20100101
